FAERS Safety Report 20309177 (Version 1)
Quarter: 2022Q1

REPORT INFORMATION
  Report Type: Spontaneous
  Country: US (occurrence: None)
  Receive Date: 20220107
  Receipt Date: 20220107
  Transmission Date: 20220424
  Serious: Yes (Other)
  Sender: FDA-Public Use
  Company Number: US-ROCHE-2993766

PATIENT
  Sex: Female

DRUGS (2)
  1. PERJETA [Suspect]
     Active Substance: PERTUZUMAB
     Indication: Breast cancer metastatic
     Route: 042
  2. HERCEPTIN [Suspect]
     Active Substance: TRASTUZUMAB
     Indication: Breast cancer metastatic
     Route: 041

REACTIONS (1)
  - Breast cancer metastatic [Unknown]
